FAERS Safety Report 23851618 (Version 1)
Quarter: 2024Q2

REPORT INFORMATION
  Report Type: Spontaneous
  Country: FR (occurrence: FR)
  Receive Date: 20240514
  Receipt Date: 20240514
  Transmission Date: 20240716
  Serious: Yes (Life-Threatening, Other)
  Sender: FDA-Public Use
  Company Number: FR-GRUNENTHAL-2018-22979

PATIENT
  Age: 69 Year
  Sex: Male
  Weight: 66 kg

DRUGS (32)
  1. ACETAMINOPHEN [Suspect]
     Active Substance: ACETAMINOPHEN
     Indication: Product used for unknown indication
     Dosage: 3 DF, QD (1 DOSAGE FORM, TID)
     Route: 065
  2. ACETAMINOPHEN [Suspect]
     Active Substance: ACETAMINOPHEN
     Dosage: 1 DF, 1X/DAY (QD)
     Route: 065
  3. ACETAMINOPHEN [Suspect]
     Active Substance: ACETAMINOPHEN
     Dosage: TIME INTERVAL: 0.33333333 DAYS: 1 DF, TID (1 DF, 3X/DAY (TID))
     Route: 065
  4. ELIQUIS [Suspect]
     Active Substance: APIXABAN
     Indication: Product used for unknown indication
     Dosage: 1 DF, QD (1 DF, 1X/DAY (QD))
     Route: 065
  5. ELIQUIS [Suspect]
     Active Substance: APIXABAN
     Route: 065
  6. ELIQUIS [Suspect]
     Active Substance: APIXABAN
     Route: 065
  7. ELIQUIS [Suspect]
     Active Substance: APIXABAN
     Dosage: NUMBER OF UNITS IN THE INTERVAL : 0.5?DEFINITION OF THE TIME INTERVAL UNIT : DAY
     Route: 048
  8. VALACYCLOVIR HYDROCHLORIDE [Suspect]
     Active Substance: VALACYCLOVIR HYDROCHLORIDE
     Indication: Infection prophylaxis
     Dosage: 500 MG, QD
     Route: 048
     Dates: end: 201806
  9. BACTRIM [Suspect]
     Active Substance: SULFAMETHOXAZOLE\TRIMETHOPRIM
     Indication: Pneumocystis jirovecii pneumonia
     Dosage: 1 DF, 1X/DAY (QD)
     Route: 048
     Dates: end: 201806
  10. BACTRIM [Suspect]
     Active Substance: SULFAMETHOXAZOLE\TRIMETHOPRIM
     Dosage: TIME INTERVAL: 0.33333333 DAYS: 1 DF, 1X/DAY (QD)
     Route: 065
  11. VESICARE [Suspect]
     Active Substance: SOLIFENACIN SUCCINATE
     Indication: Urinary incontinence
     Dosage: 10 MILLIGRAM, QD
     Route: 048
  12. PREGABALIN [Suspect]
     Active Substance: PREGABALIN
     Indication: Product used for unknown indication
     Dosage: 2 DOSAGE FORM, QD
     Route: 065
  13. PREGABALIN [Suspect]
     Active Substance: PREGABALIN
     Dosage: 1 DOSAGE FORM, QD
     Route: 065
  14. TRAMADOL HYDROCHLORIDE [Suspect]
     Active Substance: TRAMADOL HYDROCHLORIDE
     Indication: Pain
     Dosage: UNK, QD
     Route: 065
  15. TRAMADOL HYDROCHLORIDE [Suspect]
     Active Substance: TRAMADOL HYDROCHLORIDE
     Dosage: 400 MG, 1X/DAY
     Route: 048
     Dates: start: 201604, end: 201806
  16. TRAMADOL HYDROCHLORIDE [Suspect]
     Active Substance: TRAMADOL HYDROCHLORIDE
     Dosage: 200 MG, 1X/DAY
     Route: 048
     Dates: end: 201806
  17. TRAMADOL HYDROCHLORIDE [Suspect]
     Active Substance: TRAMADOL HYDROCHLORIDE
     Dosage: TIME INTERVAL: 0.33333333 DAYS: UNK, TID
     Route: 048
  18. LANSOPRAZOLE [Suspect]
     Active Substance: LANSOPRAZOLE
     Indication: Product used for unknown indication
     Dosage: 1 DF, DAILY
     Route: 065
  19. LANSOPRAZOLE [Suspect]
     Active Substance: LANSOPRAZOLE
     Dosage: UNK, QD
     Route: 065
  20. LACTULOSE [Suspect]
     Active Substance: LACTULOSE
     Indication: Product used for unknown indication
     Dosage: 2 DF, 1X/DAY
     Route: 065
  21. LACTULOSE [Suspect]
     Active Substance: LACTULOSE
     Dosage: 2 DF, 1X/DAY
     Route: 065
  22. FOLIC ACID [Suspect]
     Active Substance: FOLIC ACID
     Indication: Product used for unknown indication
     Dosage: UNK
     Route: 065
  23. ZOPICLONE [Suspect]
     Active Substance: ZOPICLONE
     Indication: Product used for unknown indication
     Dosage: 1 DF, 1X/DAY
     Route: 065
  24. ZOPICLONE [Suspect]
     Active Substance: ZOPICLONE
     Dosage: 1 DF, 1X/DAY
     Route: 065
  25. BACLOFEN [Suspect]
     Active Substance: BACLOFEN
     Indication: Product used for unknown indication
     Dosage: 1 DOSAGE FORM, QD
     Route: 065
  26. BACLOFEN [Suspect]
     Active Substance: BACLOFEN
     Dosage: 2 DF, TID
     Route: 065
  27. BACLOFEN [Suspect]
     Active Substance: BACLOFEN
     Dosage: 6 DF, QD
     Route: 065
  28. BACLOFEN [Suspect]
     Active Substance: BACLOFEN
     Dosage: UNK, BID
     Route: 065
  29. BACLOFEN [Suspect]
     Active Substance: BACLOFEN
     Dosage: TIME INTERVAL: 0.33333333 DAYS: UNK,TID
     Route: 065
  30. BACLOFEN [Suspect]
     Active Substance: BACLOFEN
     Dosage: UNK, QD
     Route: 065
  31. DEXAMETHASONE ACETATE [Suspect]
     Active Substance: DEXAMETHASONE ACETATE
     Indication: Product used for unknown indication
     Dosage: 1 DF, WEEKLY
     Route: 065
  32. AMOXICILLIN TRIHYDRATE [Suspect]
     Active Substance: AMOXICILLIN
     Indication: Infection
     Dosage: 1000 MG, QD
     Route: 048
     Dates: end: 201806

REACTIONS (8)
  - Coma [Recovered/Resolved]
  - Drug intolerance [Unknown]
  - Confusional state [Recovered/Resolved]
  - Overdose [Recovered/Resolved]
  - Off label use [Unknown]
  - Somnolence [Recovered/Resolved]
  - Blood pressure decreased [Unknown]
  - Epilepsy [Recovered/Resolved]

NARRATIVE: CASE EVENT DATE: 20180607
